FAERS Safety Report 9732052 (Version 1)
Quarter: 2013Q4

REPORT INFORMATION
  Report Type: Spontaneous
  Country: US (occurrence: None)
  Receive Date: 20131204
  Receipt Date: 20131204
  Transmission Date: 20140711
  Serious: Yes (Death)
  Sender: FDA-Public Use
  Company Number: None

PATIENT
  Age: 81 Year
  Sex: Male
  Weight: 91 kg

DRUGS (1)
  1. LOVASTATIN [Suspect]
     Indication: HYPERCHOLESTEROLAEMIA
     Dosage: 1 PILL QHS/BEDTIME ORAL
     Route: 048

REACTIONS (4)
  - Agitation [None]
  - Delirium [None]
  - Drug reaction with eosinophilia and systemic symptoms [None]
  - Metabolic encephalopathy [None]
